FAERS Safety Report 8695009 (Version 2)
Quarter: 2012Q4

REPORT INFORMATION
  Report Type: Report from Study
  Country: US (occurrence: US)
  Receive Date: 20120731
  Receipt Date: 20120914
  Transmission Date: 20130627
  Serious: Yes (Death)
  Sender: FDA-Public Use
  Company Number: US-EISAI INC-E3810-05698-SOL-US

PATIENT
  Age: 48 None
  Sex: Female

DRUGS (1)
  1. ACIPHEX (RABEPRAZOLE) [Suspect]
     Route: 048

REACTIONS (1)
  - Breast cancer metastatic [Fatal]
